FAERS Safety Report 4698626-3 (Version None)
Quarter: 2005Q2

REPORT INFORMATION
  Report Type: 
  Country: None (occurrence: None)
  Receive Date: 20050623
  Receipt Date: 20050113
  Transmission Date: 20051028
  Serious: Yes (Other)
  Sender: FDA-Public Use
  Company Number: NUBN20050002

PATIENT
  Age: 25 Year
  Sex: Male

DRUGS (1)
  1. NUBAIN [Suspect]
     Indication: INTENTIONAL MISUSE
     Dosage: 20 MG/ML

REACTIONS (1)
  - DRUG ABUSER [None]
